FAERS Safety Report 16181039 (Version 1)
Quarter: 2019Q2

REPORT INFORMATION
  Report Type: Spontaneous
  Country: ES (occurrence: ES)
  Receive Date: 20190410
  Receipt Date: 20190410
  Transmission Date: 20190711
  Serious: Yes (Hospitalization, Disabling)
  Sender: FDA-Public Use
  Company Number: ES-ELI_LILLY_AND_COMPANY-ES201904003476

PATIENT
  Age: 57 Year
  Sex: Male

DRUGS (3)
  1. OLANZAPINE. [Suspect]
     Active Substance: OLANZAPINE
     Indication: TARDIVE DYSKINESIA
     Dosage: 15 MG, DAILY
     Route: 065
     Dates: start: 2013
  2. TETRABENAZINE. [Suspect]
     Active Substance: TETRABENAZINE
     Indication: TARDIVE DYSKINESIA
     Dosage: 75 MG, DAILY
     Route: 065
     Dates: start: 2013
  3. DIAZEPAM. [Suspect]
     Active Substance: DIAZEPAM
     Indication: PRODUCT USED FOR UNKNOWN INDICATION
     Dosage: UNK, UNKNOWN
     Route: 065

REACTIONS (7)
  - Sedation complication [Unknown]
  - Off label use [Unknown]
  - Blood folate decreased [Unknown]
  - Insomnia [Unknown]
  - Treatment noncompliance [Recovered/Resolved]
  - Psychomotor skills impaired [Unknown]
  - Salivary hypersecretion [Unknown]

NARRATIVE: CASE EVENT DATE: 2013
